FAERS Safety Report 8531629-7 (Version None)
Quarter: 2012Q3

REPORT INFORMATION
  Report Type: 
  Country: None (occurrence: None)
  Receive Date: 20120723
  Receipt Date: 20120712
  Transmission Date: 20120928
  Serious: Yes (Other)
  Sender: FDA-Public Use
  Company Number: US-BRISTOL-MYERS SQUIBB COMPANY-16764045

PATIENT
  Age: 58 Year
  Sex: Female

DRUGS (2)
  1. KOMBIGLYZE XR [Suspect]
     Dosage: 1 DF: 5/500 MG,FOR ABOUT 1 MONTH
  2. METFORMIN HCL [Suspect]

REACTIONS (4)
  - NAUSEA [None]
  - TUBULOINTERSTITIAL NEPHRITIS [None]
  - RENAL TUBULAR NECROSIS [None]
  - GLYCOSYLATED HAEMOGLOBIN INCREASED [None]
